FAERS Safety Report 10973626 (Version 7)
Quarter: 2015Q3

REPORT INFORMATION
  Report Type: Spontaneous
  Country: JP (occurrence: JP)
  Receive Date: 20150401
  Receipt Date: 20150713
  Transmission Date: 20151125
  Serious: Yes (Hospitalization, Disabling, Other)
  Sender: FDA-Public Use
  Company Number: JP-ASTRAZENECA-2015SE29726

PATIENT
  Age: 88 Year
  Sex: Female
  Weight: 41 kg

DRUGS (18)
  1. GLUCOSE [Suspect]
     Active Substance: DEXTROSE
     Route: 042
     Dates: start: 20150319, end: 20150319
  2. CLARITHROMYCIN. [Concomitant]
     Active Substance: CLARITHROMYCIN
     Indication: BRONCHITIS
     Route: 048
     Dates: end: 20150313
  3. GLUCOSE [Suspect]
     Active Substance: DEXTROSE
     Dosage: 40 ML (50 %) 20:11: 5 ML/HR (50 %)
     Route: 042
     Dates: start: 20150320, end: 20150320
  4. SAXIZON [Suspect]
     Active Substance: HYDROCORTISONE SODIUM SUCCINATE
     Dosage: 300 MG, 19:51: 100 MG/6 HR
     Route: 042
     Dates: start: 20150320, end: 20150320
  5. FERROUS CITRATE NA [Concomitant]
     Indication: IRON DEFICIENCY ANAEMIA
     Route: 048
     Dates: end: 20150313
  6. GLUCOSE [Suspect]
     Active Substance: DEXTROSE
     Dosage: 3 ML/HR (50 %) 17:40: 2 ML/HR (50 %)
     Route: 042
     Dates: start: 20150321, end: 20150321
  7. DIART [Concomitant]
     Active Substance: AZOSEMIDE
     Indication: OEDEMA DUE TO RENAL DISEASE
     Route: 048
     Dates: end: 20150313
  8. TSUMURA DAIKENCHUTO EXTRACT GRANULES FOR ETHICAL USE [Concomitant]
     Active Substance: HERBALS
     Indication: CONSTIPATION
     Route: 048
     Dates: end: 20150313
  9. AMLODIN [Concomitant]
     Active Substance: AMLODIPINE BESYLATE
     Indication: HYPERTENSION
     Route: 048
     Dates: end: 20150313
  10. GRAMALIL [Concomitant]
     Active Substance: TIAPRIDE HYDROCHLORIDE
     Indication: DELIRIUM
     Route: 048
     Dates: end: 20150313
  11. GLUCOSE [Suspect]
     Active Substance: DEXTROSE
     Dosage: 2 ML/HR (50 %)
     Route: 042
     Dates: start: 20150322, end: 20150322
  12. ADONA [Concomitant]
     Active Substance: CARBAZOCHROME SODIUM SULFONATE
     Indication: EPISTAXIS
     Route: 048
     Dates: end: 20150313
  13. BYDUREON [Suspect]
     Active Substance: EXENATIDE
     Route: 058
     Dates: start: 20150313, end: 20150313
  14. AMARYL [Suspect]
     Active Substance: GLIMEPIRIDE
     Indication: TYPE 2 DIABETES MELLITUS
     Route: 048
     Dates: start: 20150313, end: 20150319
  15. BIO-THREE [Concomitant]
     Active Substance: HERBALS
     Indication: CONSTIPATION
     Route: 048
     Dates: end: 20150313
  16. MAGMITT [Concomitant]
     Active Substance: MAGNESIUM OXIDE
     Indication: CONSTIPATION
     Route: 048
     Dates: end: 20150313
  17. RABEPRAZOLE NA [Concomitant]
     Indication: GASTROOESOPHAGEAL REFLUX DISEASE
     Route: 048
     Dates: end: 20150313
  18. PREDONINE [Concomitant]
     Active Substance: PREDNISOLONE\PREDNISOLONE ACETATE\PREDNISOLONE SODIUM SUCCINATE
     Indication: PLEURISY
     Route: 048
     Dates: end: 20150313

REACTIONS (10)
  - Tonic convulsion [Recovered/Resolved]
  - Brain oedema [Recovered/Resolved]
  - Hypoglycaemia [Unknown]
  - Hyperglycaemia [Recovered/Resolved]
  - Hypoglycaemic coma [Not Recovered/Not Resolved]
  - Hypoglycaemic encephalopathy [Unknown]
  - Head injury [Unknown]
  - Adrenal insufficiency [Unknown]
  - Subdural haematoma [Recovering/Resolving]
  - Fall [Unknown]

NARRATIVE: CASE EVENT DATE: 201503
